FAERS Safety Report 13943624 (Version 2)
Quarter: 2017Q4

REPORT INFORMATION
  Report Type: Spontaneous
  Country: IE (occurrence: IE)
  Receive Date: 20170907
  Receipt Date: 20171003
  Transmission Date: 20180320
  Serious: Yes (Hospitalization, Other)
  Sender: FDA-Public Use
  Company Number: IE-SUN PHARMACEUTICAL INDUSTRIES LTD-2017R1-149291

PATIENT
  Age: 76 Year
  Sex: Male

DRUGS (1)
  1. QUETIAPINE. [Suspect]
     Active Substance: QUETIAPINE
     Indication: PSYCHOTIC DISORDER
     Dosage: UNK
     Route: 065

REACTIONS (6)
  - Drug ineffective [Unknown]
  - Catatonia [Recovering/Resolving]
  - Focal dyscognitive seizures [Recovering/Resolving]
  - Hallucination [Recovered/Resolved]
  - Aggression [Recovering/Resolving]
  - Sexually inappropriate behaviour [Recovering/Resolving]
